FAERS Safety Report 5676680-X (Version None)
Quarter: 2008Q1

REPORT INFORMATION
  Report Type: 
  Country: None (occurrence: None)
  Receive Date: 20080321
  Receipt Date: 20080321
  Transmission Date: 20080703
  Serious: Yes (Hospitalization)
  Sender: FDA-Public Use
  Company Number: None

PATIENT
  Sex: Male
  Weight: 67.1 kg

DRUGS (5)
  1. DOXIL [Suspect]
     Dosage: 70 MG
  2. PREDNISONE TAB [Suspect]
     Dosage: 100 MG
  3. RITUXIMAB (MO AB C2B8 ANTI CD 20 CHIMERIC) [Suspect]
     Dosage: 653 MG
  4. VINCRISTINE SULFATE [Suspect]
     Dosage: 2 MG
  5. CYCLOPHOSPHAMIDE [Suspect]
     Dosage: 1305 MG

REACTIONS (3)
  - ANAEMIA [None]
  - GASTROINTESTINAL HAEMORRHAGE [None]
  - RECTAL HAEMORRHAGE [None]
